FAERS Safety Report 7898694-1 (Version None)
Quarter: 2011Q4

REPORT INFORMATION
  Report Type: 
  Country: None (occurrence: None)
  Receive Date: 20111103
  Receipt Date: 20111020
  Transmission Date: 20120403
  Serious: Yes (Life-Threatening)
  Sender: FDA-Public Use
  Company Number: TCI2011A04188

PATIENT
  Age: 70 Year
  Sex: Male

DRUGS (7)
  1. ACTOS [Suspect]
     Indication: TYPE 2 DIABETES MELLITUS
     Dosage: 15 MG (15 MG, 1 IN 1 D)
     Route: 048
     Dates: start: 20090121, end: 20090217
  2. MONTELUKAST SODIUM [Concomitant]
  3. AMARYL [Concomitant]
  4. ALLEGRA [Concomitant]
  5. GLUCOBAY [Concomitant]
  6. METGLUCO (METFORMIN HYDROCHLORIDE) [Concomitant]
  7. MUCOSOVAN (AMBROXOL HYDROCHLORIDE) [Concomitant]

REACTIONS (1)
  - BLADDER CANCER [None]
